FAERS Safety Report 4523943-7 (Version None)
Quarter: 2004Q4

REPORT INFORMATION
  Report Type: 
  Country: None (occurrence: None)
  Receive Date: 20041209
  Receipt Date: 20041207
  Transmission Date: 20050328
  Serious: Yes (Other)
  Sender: FDA-Public Use
  Company Number: 163-20785-04070266

PATIENT
  Age: 45 Year
  Sex: Female

DRUGS (10)
  1. THALOMID [Suspect]
     Indication: GLIOBLASTOMA MULTIFORME
     Dosage: 400 MG, DAILY, ORAL
     Route: 048
     Dates: start: 20040408, end: 20040708
  2. THALOMID [Suspect]
     Indication: GLIOBLASTOMA MULTIFORME
     Dosage: 400 MG, DAILY, ORAL
     Route: 048
     Dates: start: 20040701
  3. KEPPRA [Concomitant]
  4. TRICOR [Concomitant]
  5. CELEBREX [Concomitant]
  6. REMERON [Concomitant]
  7. PROTONIX [Concomitant]
  8. COLACE (DOCUSATE SODIUM) [Concomitant]
  9. ETOPOSIDE [Concomitant]
  10. CYTOXAN [Concomitant]

REACTIONS (1)
  - BLOOD HUMAN CHORIONIC GONADOTROPIN INCREASED [None]
